FAERS Safety Report 7279783-1 (Version None)
Quarter: 2011Q1

REPORT INFORMATION
  Report Type: 
  Country: None (occurrence: None)
  Receive Date: 20110203
  Receipt Date: 20110203
  Transmission Date: 20110831
  Serious: Yes (Life-Threatening, Hospitalization, Other)
  Sender: FDA-Public Use
  Company Number: None

PATIENT
  Age: 47 Year
  Sex: Female
  Weight: 43.9989 kg

DRUGS (2)
  1. NARCAN [Suspect]
  2. EXALGO [Suspect]
     Dosage: EXAGOL ONCE DAILY PO
     Route: 048
     Dates: start: 20110110, end: 20110119

REACTIONS (9)
  - FATIGUE [None]
  - ARRHYTHMIA [None]
  - PALPITATIONS [None]
  - SCREAMING [None]
  - ASTHENIA [None]
  - HEART RATE DECREASED [None]
  - CHEST PAIN [None]
  - DRUG WITHDRAWAL SYNDROME [None]
  - DRUG INEFFECTIVE [None]
